FAERS Safety Report 10665443 (Version 6)
Quarter: 2015Q1

REPORT INFORMATION
  Report Type: Spontaneous
  Country: JP (occurrence: JP)
  Receive Date: 20141219
  Receipt Date: 20150319
  Transmission Date: 20150720
  Serious: Yes (Death, Life-Threatening)
  Sender: FDA-Public Use
  Company Number: JP-SA-2014SA172963

PATIENT
  Age: 59 Year
  Sex: Male

DRUGS (26)
  1. WARFARIN [Concomitant]
     Active Substance: WARFARIN
  2. BONALON [Concomitant]
     Active Substance: ALENDRONATE SODIUM
     Dates: start: 20140423
  3. BIOFERMIN [Concomitant]
     Active Substance: BACILLUS SUBTILIS\LACTOBACILLUS ACIDOPHILUS\STREPTOCOCCUS FAECAIS
     Dosage: POWDER
  4. FERROMIA [Concomitant]
     Active Substance: FERROUS CITRATE
  5. CEFTRIAXONE SODIUM. [Concomitant]
     Active Substance: CEFTRIAXONE SODIUM
     Dates: start: 20140520, end: 20140607
  6. DEPAKENE [Concomitant]
     Active Substance: VALPROIC ACID
  7. KINDAVATE [Concomitant]
     Dates: start: 20140430
  8. CEFOZOPRAN HYDROCHLORIDE [Concomitant]
     Active Substance: CEFOZOPRAN HYDROCHLORIDE
     Dates: start: 20140506, end: 20140506
  9. NORVASC [Concomitant]
     Active Substance: AMLODIPINE BESYLATE
  10. BAKTAR [Concomitant]
     Active Substance: SULFAMETHOXAZOLE\TRIMETHOPRIM
  11. HEPARIN SODIUM. [Concomitant]
     Active Substance: HEPARIN SODIUM
     Dates: start: 20140508, end: 20140529
  12. MYSLEE [Concomitant]
     Active Substance: ZOLPIDEM TARTRATE
  13. ALLELOCK [Concomitant]
     Active Substance: OLOPATADINE HYDROCHLORIDE
     Dates: start: 20140430
  14. NERISONA [Concomitant]
     Active Substance: DIFLUCORTOLONE VALERATE
     Dates: start: 20140430
  15. METHYLPREDNISOLONE SODIUM SUCCINATE. [Concomitant]
     Active Substance: METHYLPREDNISOLONE SODIUM SUCCINATE
     Dates: start: 20140520, end: 20140603
  16. DECADRON [Concomitant]
     Active Substance: DEXAMETHASONE
     Dates: start: 20140422, end: 20140422
  17. HALCION [Concomitant]
     Active Substance: TRIAZOLAM
  18. METHYCOBAL [Concomitant]
     Active Substance: METHYLCOBALAMIN
  19. FOIPAN [Concomitant]
     Active Substance: CAMOSTAT MESYLATE
     Dates: start: 20140422
  20. ALFAROL [Concomitant]
     Active Substance: ALFACALCIDOL
  21. ELPLAT [Suspect]
     Active Substance: OXALIPLATIN
     Indication: COLON CANCER
     Route: 041
     Dates: start: 20140422, end: 20140422
  22. TS-1 [Suspect]
     Active Substance: GIMERACIL\OTERACIL\TEGAFUR
     Indication: COLON CANCER
     Route: 048
     Dates: start: 20140422, end: 20140502
  23. SEROTONE [Concomitant]
     Active Substance: AZASETRON HYDROCHLORIDE
     Dates: start: 20140422, end: 20140422
  24. TAKEPRON [Concomitant]
     Active Substance: LANSOPRAZOLE
  25. NELBON [Concomitant]
     Active Substance: NITRAZEPAM
  26. AMITRIPTYLINE HYDROCHLORIDE. [Concomitant]
     Active Substance: AMITRIPTYLINE HYDROCHLORIDE

REACTIONS (8)
  - Atelectasis [Fatal]
  - Skin disorder [Recovering/Resolving]
  - Sepsis [Fatal]
  - Pneumonia [Fatal]
  - Pyrexia [Recovering/Resolving]
  - Disseminated intravascular coagulation [Fatal]
  - Intestinal ischaemia [Recovered/Resolved]
  - Diarrhoea [Unknown]

NARRATIVE: CASE EVENT DATE: 20140430
